FAERS Safety Report 23230089 (Version 1)
Quarter: 2023Q4

REPORT INFORMATION
  Report Type: Spontaneous
  Country: US (occurrence: None)
  Receive Date: 20231123
  Receipt Date: 20231123
  Transmission Date: 20240110
  Serious: Yes (Other)
  Sender: FDA-Public Use
  Company Number: None

PATIENT
  Sex: Male

DRUGS (20)
  1. HUMIRA [Suspect]
     Active Substance: ADALIMUMAB
     Dosage: FREQUENCY : EVERY OTHER WEEK;?
     Route: 058
  2. ABILIFY TAB [Concomitant]
  3. AMIODARONE [Concomitant]
  4. ARAVA [Concomitant]
  5. ATORVASTATIN [Concomitant]
  6. CALCIUM CHW [Concomitant]
  7. CRUSH VIT C LOZ [Concomitant]
  8. CYMBALTA CAP [Concomitant]
  9. DILTIAZEM CAP [Concomitant]
  10. ELIQUIS TAB [Concomitant]
  11. FOLIC ACID TAB [Concomitant]
  12. GABAPENTIN CAP [Concomitant]
  13. MAGNESIUM TAB [Concomitant]
  14. PLAQUENIL [Concomitant]
  15. PREDNISONE TAB [Concomitant]
  16. PREDNISONE [Concomitant]
  17. PREGABALIN CAP [Concomitant]
  18. TOPROL XL [Concomitant]
  19. VASCEPA CAP [Concomitant]
  20. VITAMIN D3 CAP [Concomitant]

REACTIONS (2)
  - Intentional dose omission [None]
  - Procedural pain [None]
